FAERS Safety Report 9127846 (Version 1)
Quarter: 2013Q1

REPORT INFORMATION
  Report Type: Spontaneous
  Country: US (occurrence: US)
  Receive Date: 20130228
  Receipt Date: 20130228
  Transmission Date: 20140127
  Serious: No
  Sender: FDA-Public Use
  Company Number: US-GLAXOSMITHKLINE-A1004740A

PATIENT
  Sex: Male

DRUGS (5)
  1. LAMICTAL [Suspect]
  2. ESCITALOPRAM [Suspect]
  3. VYVANSE [Suspect]
  4. ABILIFY [Suspect]
  5. FLAXSEED OIL [Suspect]

REACTIONS (4)
  - Disturbance in attention [Not Recovered/Not Resolved]
  - Asthenia [Unknown]
  - Tremor [Unknown]
  - Drug ineffective [Unknown]
